FAERS Safety Report 24543939 (Version 2)
Quarter: 2024Q4

REPORT INFORMATION
  Report Type: Spontaneous
  Country: CN (occurrence: CN)
  Receive Date: 20241024
  Receipt Date: 20241116
  Transmission Date: 20250114
  Serious: Yes (Death, Life-Threatening, Hospitalization, Other)
  Sender: SANOFI AVENTIS
  Company Number: CN-SA-2024SA298118

PATIENT
  Age: 54 Year
  Sex: Male

DRUGS (19)
  1. ANTI-THYMOCYTE GLOBULIN (RABBIT) NOS [Suspect]
     Active Substance: LAPINE T-LYMPHOCYTE IMMUNE GLOBULIN
     Indication: Bone marrow conditioning regimen
     Dosage: 2.5 MG/KG, QD
     Dates: start: 2019, end: 2019
  2. ANTI-THYMOCYTE GLOBULIN (RABBIT) NOS [Suspect]
     Active Substance: LAPINE T-LYMPHOCYTE IMMUNE GLOBULIN
     Indication: Stem cell transplant
  3. METHYLPREDNISOLONE [Suspect]
     Active Substance: METHYLPREDNISOLONE
     Indication: Engraftment syndrome
     Dosage: 1 MG/KG/DAY, TAPERING OF STEROIDS
     Dates: start: 2019, end: 201912
  4. METHYLPREDNISOLONE [Suspect]
     Active Substance: METHYLPREDNISOLONE
     Indication: Prophylaxis against graft versus host disease
     Dosage: 2 MG/KG, QD, INCREASE IN THE MP DOSE TO 2 MG/KG/DAY TAPERING OF STEROIDS
     Dates: start: 201912, end: 202006
  5. BUSULFAN [Suspect]
     Active Substance: BUSULFAN
     Indication: Bone marrow conditioning regimen
     Dosage: 3.2 MG/KG, QD
     Dates: start: 2019, end: 2019
  6. BUSULFAN [Suspect]
     Active Substance: BUSULFAN
     Indication: Stem cell transplant
  7. CYCLOPHOSPHAMIDE [Suspect]
     Active Substance: CYCLOPHOSPHAMIDE
     Indication: Bone marrow conditioning regimen
     Dosage: 1.8 G/M2, QD
     Dates: start: 2019, end: 2019
  8. CYCLOPHOSPHAMIDE [Suspect]
     Active Substance: CYCLOPHOSPHAMIDE
     Indication: Stem cell transplant
  9. ETOPOSIDE [Suspect]
     Active Substance: ETOPOSIDE
     Indication: Bone marrow conditioning regimen
     Dosage: 20 MG/KG, QD
     Dates: start: 2019, end: 2019
  10. ETOPOSIDE [Suspect]
     Active Substance: ETOPOSIDE
     Indication: Stem cell transplant
  11. CYCLOSPORINE [Suspect]
     Active Substance: CYCLOSPORINE
     Indication: Prophylaxis against graft versus host disease
     Dosage: UNK
     Dates: start: 2019, end: 2020
  12. METHOTREXATE [Suspect]
     Active Substance: METHOTREXATE
     Indication: Prophylaxis against graft versus host disease
     Dosage: UNK, SHORT COURSE
     Dates: start: 2019
  13. MYCOPHENOLATE MOFETIL [Suspect]
     Active Substance: MYCOPHENOLATE MOFETIL
     Indication: Prophylaxis against graft versus host disease
     Dosage: UNK
     Dates: start: 2019, end: 202006
  14. RITUXIMAB [Suspect]
     Active Substance: RITUXIMAB
     Indication: Stem cell transplant
     Dosage: 100 MG, QW, FOR TWO DOSES
     Dates: start: 201912
  15. RITUXIMAB [Suspect]
     Active Substance: RITUXIMAB
     Indication: Prophylaxis
  16. BASILIXIMAB [Suspect]
     Active Substance: BASILIXIMAB
     Indication: Graft versus host disease
     Dosage: 20 MG, WAS GIVEN ON DAYS 33, 36, 40, AND 47
     Dates: start: 20200102, end: 20200116
  17. BASILIXIMAB [Suspect]
     Active Substance: BASILIXIMAB
     Indication: Acute graft versus host disease
  18. RUXOLITINIB [Suspect]
     Active Substance: RUXOLITINIB
     Indication: Graft versus host disease
     Dosage: 5 MG, BID
     Dates: start: 202001
  19. RUXOLITINIB [Suspect]
     Active Substance: RUXOLITINIB
     Indication: Acute graft versus host disease

REACTIONS (13)
  - Respiratory failure [Fatal]
  - Posterior reversible encephalopathy syndrome [Recovered/Resolved]
  - Encephalitis cytomegalovirus [Fatal]
  - Pyrexia [Fatal]
  - Vision blurred [Fatal]
  - Retinal exudates [Fatal]
  - Retinal haemorrhage [Fatal]
  - Diarrhoea [Fatal]
  - Decreased appetite [Fatal]
  - Thrombocytopenia [Fatal]
  - Cytomegalovirus viraemia [Fatal]
  - Cytomegalovirus infection reactivation [Fatal]
  - Epstein-Barr virus infection [Unknown]

NARRATIVE: CASE EVENT DATE: 20191201
